FAERS Safety Report 8814103 (Version 1)
Quarter: 2012Q4

REPORT INFORMATION
  Report Type: 
  Country: AT (occurrence: AT)
  Receive Date: 20120928
  Receipt Date: 20120928
  Transmission Date: 20130627
  Serious: Yes (Death, Other)
  Sender: FDA-Public Use
  Company Number: AT-AMGEN-AUTSP2012060029

PATIENT
  Age: 74 Year
  Sex: Female

DRUGS (6)
  1. DARBEPOETIN ALFA [Suspect]
     Indication: PRODUCT USED FOR UNKNOWN INDICATION
     Dosage: 150 mug, qwk
     Dates: start: 2007, end: 2009
  2. DARBEPOETIN ALFA [Suspect]
     Dosage: 500 mug, q3wk
     Dates: start: 2007, end: 2009
  3. ERYTHROPOETIN [Concomitant]
     Dosage: UNK
     Dates: end: 200910
  4. AROMASIN [Concomitant]
     Dosage: UNK
     Dates: start: 200808
  5. NAVELBINE [Concomitant]
     Indication: LUNG NEOPLASM MALIGNANT
     Dosage: UNK
     Dates: start: 200907, end: 200910
  6. RED BLOOD CELLS, CONCENTRATED [Concomitant]
     Dosage: UNK
     Dates: start: 2006, end: 2010

REACTIONS (6)
  - Death [Fatal]
  - Lung neoplasm malignant [Unknown]
  - Panic attack [Unknown]
  - Drug ineffective [Unknown]
  - Restlessness [Unknown]
  - Therapeutic response decreased [Unknown]
